FAERS Safety Report 5643279-0 (Version None)
Quarter: 2008Q1

REPORT INFORMATION
  Report Type: 
  Country: None (occurrence: None)
  Receive Date: 20080226
  Receipt Date: 20080211
  Transmission Date: 20080703
  Serious: Yes (Hospitalization)
  Sender: FDA-Public Use
  Company Number: 08-000276

PATIENT
  Age: 57 Year
  Sex: Male

DRUGS (11)
  1. DURICEF [Suspect]
     Indication: TEMPERATURE INTOLERANCE
     Dosage: 1 G, QD, ORAL
     Route: 048
     Dates: start: 20071103, end: 20071109
  2. AUGMENTIN [Suspect]
     Indication: PRODUCTIVE COUGH
     Dosage: 1.0 G, QD, ORAL
     Route: 048
     Dates: start: 20071112, end: 20071117
  3. VASTAREL (TRIMETAZIDINE HYDROCHLORIDE) [Concomitant]
  4. OMACOR [Concomitant]
  5. PLAVIX [Concomitant]
  6. ATORVASTATIN CALCIUM [Concomitant]
  7. TENORMIN [Concomitant]
  8. PRAZEPAM [Concomitant]
  9. EFFEXOR (VENLAFAXIINE) [Concomitant]
  10. LOPERAMIDE [Concomitant]
  11. SULFARLEN (ANETHOLE TRITHIONE) [Concomitant]

REACTIONS (6)
  - ARTHRALGIA [None]
  - HYPERHIDROSIS [None]
  - INFLAMMATION [None]
  - PRODUCTIVE COUGH [None]
  - SERUM SICKNESS [None]
  - SKIN EXFOLIATION [None]
